FAERS Safety Report 8813646 (Version 1)
Quarter: 2012Q4

REPORT INFORMATION
  Report Type: 
  Country: BR (occurrence: BR)
  Receive Date: 20120927
  Receipt Date: 20120927
  Transmission Date: 20130627
  Serious: Yes (Other)
  Sender: FDA-Public Use
  Company Number: PHHY2012BR083713

PATIENT
  Age: 14 Year
  Sex: Male

DRUGS (3)
  1. RITALIN LA [Suspect]
     Dosage: 10 mg, per day
  2. RITALIN LA [Suspect]
     Dosage: 20 mg, per day
  3. RITALIN LA [Suspect]
     Dosage: 40 mg, UNK
     Dates: start: 20120921

REACTIONS (11)
  - Amnesia [Unknown]
  - Confusional state [Recovered/Resolved]
  - Speech disorder [Recovered/Resolved]
  - Depression [Recovered/Resolved]
  - Tremor [Recovered/Resolved]
  - Irritability [Recovered/Resolved]
  - Crying [Recovered/Resolved]
  - Thirst [Recovered/Resolved]
  - Nausea [Recovered/Resolved]
  - Vomiting [Recovered/Resolved]
  - Hypersomnia [Recovered/Resolved]
